FAERS Safety Report 5048507-0 (Version None)
Quarter: 2006Q3

REPORT INFORMATION
  Report Type: 
  Country: None (occurrence: None)
  Receive Date: 20060705
  Receipt Date: 20060613
  Transmission Date: 20061208
  Serious: Yes (Hospitalization)
  Sender: FDA-Public Use
  Company Number: DE200606003194

PATIENT
  Sex: Female

DRUGS (3)
  1. CYMBALTA [Suspect]
     Indication: DEPRESSION
     Dosage: 90 MG, DAILY (1/D), ORAL
     Route: 048
     Dates: start: 20060517
  2. RANITIDIN ^ISIS^ (RANITIDINE HYDROCHLORIDE) [Concomitant]
  3. NOVAMINSULFON-RATIOPHARM (METAMIZOLE SODIUM) [Concomitant]

REACTIONS (1)
  - CHOLELITHIASIS [None]
